FAERS Safety Report 7240208-3 (Version None)
Quarter: 2011Q1

REPORT INFORMATION
  Report Type: 
  Country: None (occurrence: None)
  Receive Date: 20110124
  Receipt Date: 20110112
  Transmission Date: 20110831
  Serious: Yes (Hospitalization, Other)
  Sender: FDA-Public Use
  Company Number: US-CELGENEUS-163-21880-10122580

PATIENT
  Sex: Male
  Weight: 84.444 kg

DRUGS (12)
  1. DEXAMETHASONE [Concomitant]
     Route: 048
  2. MULTI-VITAMINS [Concomitant]
     Route: 048
  3. TOPROL-XL [Concomitant]
     Route: 048
  4. COUMADIN [Concomitant]
     Route: 048
  5. REVLIMID [Suspect]
     Indication: MULTIPLE MYELOMA
     Route: 048
     Dates: start: 20101123
  6. LOSARTAN [Concomitant]
     Route: 048
  7. FELODIPINE [Concomitant]
     Route: 048
  8. PRILOSEC [Concomitant]
     Route: 048
  9. DULCOLAX [Concomitant]
     Indication: CONSTIPATION
     Route: 048
  10. KLONOPIN [Concomitant]
     Route: 048
  11. AMBIEN [Concomitant]
     Indication: INSOMNIA
     Route: 048
  12. FOLIC ACID [Concomitant]
     Route: 048

REACTIONS (3)
  - BLOOD CALCIUM INCREASED [None]
  - DISEASE PROGRESSION [None]
  - CHEST PAIN [None]
